FAERS Safety Report 10571835 (Version 1)
Quarter: 2014Q4

REPORT INFORMATION
  Report Type: Spontaneous
  Country: US (occurrence: US)
  Receive Date: 20141107
  Receipt Date: 20141107
  Transmission Date: 20150529
  Serious: No
  Sender: FDA-Public Use
  Company Number: US-TEVA-521285USA

PATIENT
  Sex: Male
  Weight: 88.98 kg

DRUGS (2)
  1. ACTIQ [Suspect]
     Active Substance: FENTANYL CITRATE
     Indication: HEADACHE
     Route: 065
     Dates: start: 200305
  2. FENTANYL TRANSDERMAL SYSTEM [Concomitant]
     Active Substance: FENTANYL
     Indication: HEADACHE
     Dosage: EVERY 2 DAYS
     Route: 062
     Dates: start: 200305

REACTIONS (5)
  - Off label use [Unknown]
  - Weight fluctuation [Not Recovered/Not Resolved]
  - Pain [Unknown]
  - Pain [Not Recovered/Not Resolved]
  - Headache [Unknown]
